FAERS Safety Report 18769598 (Version 2)
Quarter: 2022Q2

REPORT INFORMATION
  Report Type: Spontaneous
  Country: US (occurrence: US)
  Receive Date: 20210121
  Receipt Date: 20220411
  Transmission Date: 20220721
  Serious: Yes (Other)
  Sender: FDA-Public Use
  Company Number: US-GLAXOSMITHKLINE-US2021GSK014030

PATIENT
  Sex: Female

DRUGS (2)
  1. RANITIDINE [Suspect]
     Active Substance: RANITIDINE
     Indication: Gastric disorder
     Dosage: 150 MG, QD
     Route: 065
     Dates: start: 200401, end: 201107
  2. RANITIDINE [Suspect]
     Active Substance: RANITIDINE
     Indication: Gastric disorder
     Dosage: 150 MG, QD
     Route: 065
     Dates: start: 200401, end: 201107

REACTIONS (3)
  - Plasma cell myeloma [Unknown]
  - Bone cancer [Unknown]
  - Insomnia [Unknown]
